FAERS Safety Report 25957286 (Version 1)
Quarter: 2025Q4

REPORT INFORMATION
  Report Type: Spontaneous
  Country: US (occurrence: US)
  Receive Date: 20251024
  Receipt Date: 20251024
  Transmission Date: 20260118
  Serious: No
  Sender: SEPTODONT
  Company Number: US-SEPTODONT-2025019750

PATIENT
  Age: 41 Year
  Sex: Male

DRUGS (5)
  1. SEPTOCAINE [Suspect]
     Active Substance: ARTICAINE HYDROCHLORIDE\EPINEPHRINE BITARTRATE
     Indication: Dental local anaesthesia
     Dosage: 2 CARPULES.
     Route: 004
  2. MARCAINE [Suspect]
     Active Substance: BUPIVACAINE HYDROCHLORIDE
     Indication: Dental local anaesthesia
  3. Hurricane 20% Benzocaine [Concomitant]
     Indication: Product used for unknown indication
  4. Henry Schein 27Ga 30mm [Concomitant]
     Indication: Dental local anaesthesia
  5. HALCION [Concomitant]
     Active Substance: TRIAZOLAM
     Indication: Product used for unknown indication
     Dosage: 0.25 MG DAILY DOSE.
     Dates: start: 20250626, end: 20250627

REACTIONS (3)
  - Drug ineffective [Unknown]
  - Discomfort [Unknown]
  - Procedural anxiety [Unknown]
